FAERS Safety Report 12832515 (Version 1)
Quarter: 2016Q4

REPORT INFORMATION
  Report Type: Spontaneous
  Country: US (occurrence: US)
  Receive Date: 20161010
  Receipt Date: 20161010
  Transmission Date: 20170207
  Serious: No
  Sender: FDA-Public Use
  Company Number: US-JAZZ-2016-US-013317

PATIENT
  Sex: Female

DRUGS (29)
  1. XYREM [Suspect]
     Active Substance: SODIUM OXYBATE
     Indication: NARCOLEPSY
     Dosage: 3 G, BID
     Route: 048
     Dates: start: 200903, end: 200904
  2. XYREM [Suspect]
     Active Substance: SODIUM OXYBATE
     Dosage: 4.5 G, BID
     Route: 048
     Dates: start: 201501
  3. PREDNISONE. [Concomitant]
     Active Substance: PREDNISONE
  4. TESTOSTERONE. [Concomitant]
     Active Substance: TESTOSTERONE
  5. PROGESTERONE. [Concomitant]
     Active Substance: PROGESTERONE
  6. ASPIRIN. [Concomitant]
     Active Substance: ASPIRIN
  7. CYMBALTA [Concomitant]
     Active Substance: DULOXETINE HYDROCHLORIDE
  8. ATORVASTATIN [Concomitant]
     Active Substance: ATORVASTATIN
  9. METFORMIN HCL [Concomitant]
     Active Substance: METFORMIN HYDROCHLORIDE
  10. METANX [Concomitant]
     Active Substance: LEVOMEFOLATE CALCIUM\METHYLCOBALAMIN\PYRIDOXAL PHOSPHATE ANHYDROUS
  11. ARIPIPRAZOLE. [Concomitant]
     Active Substance: ARIPIPRAZOLE
  12. NORTRIPTYLINE HCL [Concomitant]
     Active Substance: NORTRIPTYLINE HYDROCHLORIDE
  13. VYVANSE [Concomitant]
     Active Substance: LISDEXAMFETAMINE DIMESYLATE
  14. INTEGRA [Concomitant]
     Active Substance: DIETARY SUPPLEMENT
  15. XYREM [Suspect]
     Active Substance: SODIUM OXYBATE
     Dosage: 4.5 G, BID
     Route: 048
     Dates: start: 200904, end: 2010
  16. MODAFINIL. [Concomitant]
     Active Substance: MODAFINIL
  17. GABAPENTIN. [Concomitant]
     Active Substance: GABAPENTIN
  18. ESTROGEN [Concomitant]
     Active Substance: ESTRONE\SUS SCROFA OVARY
  19. PROVIGIL [Concomitant]
     Active Substance: MODAFINIL
  20. XYREM [Suspect]
     Active Substance: SODIUM OXYBATE
     Dosage: 4.5 G, BID
     Route: 048
     Dates: start: 201110, end: 2012
  21. XYREM [Suspect]
     Active Substance: SODIUM OXYBATE
     Dosage: 4.5 G, BID
     Route: 048
     Dates: start: 201012, end: 2011
  22. DULOXETINE HCL [Concomitant]
     Active Substance: DULOXETINE HYDROCHLORIDE
  23. TRIAMCINOLONE [Concomitant]
     Active Substance: TRIAMCINOLONE
  24. LEXAPRO [Concomitant]
     Active Substance: ESCITALOPRAM OXALATE
  25. XYREM [Suspect]
     Active Substance: SODIUM OXYBATE
     Dosage: 4.5 G, BID
     Route: 048
     Dates: start: 201302, end: 2013
  26. XYREM [Suspect]
     Active Substance: SODIUM OXYBATE
     Dosage: 4.5 G, BID
     Route: 048
     Dates: start: 201309, end: 2014
  27. CLOBETASOL [Concomitant]
     Active Substance: CLOBETASOL
  28. CHLORHEXIDINE [Concomitant]
     Active Substance: CHLORHEXIDINE
  29. DENTA 5000 PLUS [Concomitant]
     Active Substance: SODIUM FLUORIDE

REACTIONS (1)
  - Drug ineffective [Unknown]
